FAERS Safety Report 4689731-6 (Version None)
Quarter: 2005Q2

REPORT INFORMATION
  Report Type: 
  Country: None (occurrence: None)
  Receive Date: 20050608
  Receipt Date: 20050330
  Transmission Date: 20051028
  Serious: No
  Sender: FDA-Public Use
  Company Number: 2005-BP-05229BP

PATIENT
  Age: 78 Year
  Sex: Female

DRUGS (5)
  1. SPIRIVA [Suspect]
     Indication: CHRONIC OBSTRUCTIVE PULMONARY DISEASE
     Dosage: 18 MCG (18 MCG, QD), IH
     Route: 055
     Dates: start: 20050201, end: 20050301
  2. FOSAMAX [Concomitant]
  3. ADVAIR DISKUS 100/50 [Concomitant]
  4. ATENOLOL [Concomitant]
  5. LASIX [Concomitant]

REACTIONS (1)
  - URINARY TRACT INFECTION [None]
